FAERS Safety Report 7609645-9 (Version None)
Quarter: 2011Q3

REPORT INFORMATION
  Report Type: 
  Country: None (occurrence: None)
  Receive Date: 20110714
  Receipt Date: 20110713
  Transmission Date: 20111222
  Serious: Yes (Other)
  Sender: FDA-Public Use
  Company Number: DE-BRISTOL-MYERS SQUIBB COMPANY-15712912

PATIENT
  Age: 22 Year
  Sex: Female

DRUGS (5)
  1. ABILIFY [Suspect]
     Indication: SCHIZOPHRENIA
     Dates: start: 20101007
  2. TRUXAL [Suspect]
     Indication: SLEEP DISORDER
     Dates: start: 20101007, end: 20101231
  3. TRUXAL [Suspect]
     Indication: RESTLESSNESS
     Dates: start: 20101007, end: 20101231
  4. AKINETON [Suspect]
     Indication: AKATHISIA
     Dates: start: 20101007, end: 20101231
  5. TRUXAL [Suspect]
     Indication: ANXIETY
     Dates: start: 20101007, end: 20101231

REACTIONS (2)
  - ABORTION SPONTANEOUS [None]
  - PREGNANCY [None]
